FAERS Safety Report 6421967-6 (Version None)
Quarter: 2009Q4

REPORT INFORMATION
  Report Type: 
  Country: None (occurrence: None)
  Receive Date: 20091029
  Receipt Date: 20091029
  Transmission Date: 20100525
  Serious: Yes (Hospitalization)
  Sender: FDA-Public Use
  Company Number: None

PATIENT
  Age: 28 Year
  Sex: Male

DRUGS (1)
  1. AMITRIPTYLINE HCL [Suspect]
     Indication: PAIN
     Dosage: 100 MG EVERY DAY PO
     Route: 048
     Dates: start: 20090122, end: 20090226

REACTIONS (2)
  - BIPOLAR I DISORDER [None]
  - MOOD SWINGS [None]
